FAERS Safety Report 6558593-4 (Version None)
Quarter: 2010Q1

REPORT INFORMATION
  Report Type: 
  Country: None (occurrence: None)
  Receive Date: 20100129
  Receipt Date: 20100122
  Transmission Date: 20100710
  Serious: Yes (Other)
  Sender: FDA-Public Use
  Company Number: JP-JNJFOC-20100106372

PATIENT
  Sex: Male

DRUGS (5)
  1. CRAVIT [Suspect]
     Indication: UPPER RESPIRATORY TRACT INFLAMMATION
     Route: 048
  2. IBRUPROFEN [Concomitant]
     Route: 048
  3. MUCODYNE [Concomitant]
     Route: 048
  4. MUCOSTA [Concomitant]
     Route: 048
  5. SULPYRINE [Concomitant]
     Route: 030

REACTIONS (4)
  - BLOOD PRESSURE DECREASED [None]
  - LOSS OF CONSCIOUSNESS [None]
  - SHOCK [None]
  - URINARY INCONTINENCE [None]
